FAERS Safety Report 10062746 (Version 2)
Quarter: 2014Q2

REPORT INFORMATION
  Report Type: Spontaneous
  Country: TR (occurrence: TR)
  Receive Date: 20140407
  Receipt Date: 20140415
  Transmission Date: 20141212
  Serious: Yes (Disabling, Other)
  Sender: FDA-Public Use
  Company Number: TR-GLAXOSMITHKLINE-B0983146A

PATIENT
  Age: 56 Year
  Sex: Male
  Weight: 96 kg

DRUGS (3)
  1. REVOLADE [Suspect]
     Indication: IMMUNE THROMBOCYTOPENIC PURPURA
     Route: 048
     Dates: start: 20120202, end: 201401
  2. ANTIHYPERTENSIVE [Concomitant]
  3. ANTIDIABETIC [Concomitant]

REACTIONS (3)
  - Deep vein thrombosis [Recovered/Resolved with Sequelae]
  - Pulmonary embolism [Recovered/Resolved with Sequelae]
  - Peripheral venous disease [Unknown]
